FAERS Safety Report 9157380 (Version 1)
Quarter: 2013Q1

REPORT INFORMATION
  Report Type: Spontaneous
  Country: US (occurrence: None)
  Receive Date: 20130308
  Receipt Date: 20130308
  Transmission Date: 20140127
  Serious: Yes (Hospitalization)
  Sender: FDA-Public Use
  Company Number: None

PATIENT
  Sex: Male
  Weight: 77.11 kg

DRUGS (1)
  1. NIASPAN [Suspect]
     Indication: BLOOD CHOLESTEROL
     Dosage: 1000 MG  2 A DAY  MOUTH
     Route: 048

REACTIONS (4)
  - Vomiting [None]
  - Abdominal pain upper [None]
  - Hot flush [None]
  - Hyperhidrosis [None]
